FAERS Safety Report 8431662-X (Version None)
Quarter: 2012Q2

REPORT INFORMATION
  Report Type: 
  Country: None (occurrence: None)
  Receive Date: 20120613
  Receipt Date: 20120530
  Transmission Date: 20120825
  Serious: Yes (Death, Hospitalization, Other)
  Sender: FDA-Public Use
  Company Number: JP-ELI_LILLY_AND_COMPANY-JP201205010416

PATIENT
  Age: 17 Year
  Sex: Male

DRUGS (9)
  1. ZYPREXA [Suspect]
     Indication: POSTICTAL PSYCHOSIS
     Dosage: 20 MG, UNK
     Route: 048
     Dates: start: 20120515
  2. DIAZEPAM [Concomitant]
     Dosage: 10 MG, UNK
     Dates: start: 20120515, end: 20120522
  3. VALPROATE SODIUM [Concomitant]
     Dosage: 800 MG, UNK
     Route: 048
     Dates: start: 20120515
  4. LEVETIRACETAM [Concomitant]
     Dosage: 500 MG, UNK
     Route: 048
     Dates: start: 20120522
  5. SILECE [Concomitant]
     Dosage: 4 MG, UNK
     Dates: start: 20120522
  6. TEGRETOL [Concomitant]
     Dosage: 600 MG, UNK
     Route: 048
     Dates: start: 20120518
  7. DEPAKENE [Concomitant]
     Dosage: 200 MG, UNK
     Dates: start: 20120515, end: 20120518
  8. LEVETIRACETAM [Concomitant]
     Dosage: 1000 MG, UNK
     Route: 048
     Dates: start: 20120515, end: 20120521
  9. LENDORMIN [Concomitant]
     Dosage: 0.25 MG, PRN
     Dates: start: 20120515, end: 20120522

REACTIONS (4)
  - BLOOD CREATINE PHOSPHOKINASE INCREASED [None]
  - NEUROLEPTIC MALIGNANT SYNDROME [None]
  - PYREXIA [None]
  - OFF LABEL USE [None]
